FAERS Safety Report 13278847 (Version 3)
Quarter: 2017Q2

REPORT INFORMATION
  Report Type: Spontaneous
  Country: US (occurrence: US)
  Receive Date: 20170228
  Receipt Date: 20170614
  Transmission Date: 20170830
  Serious: Yes (Hospitalization)
  Sender: FDA-Public Use
  Company Number: US-VIFOR (INTERNATIONAL) INC.-VIT-2017-02135

PATIENT
  Age: 46 Year
  Sex: Male
  Weight: 93.07 kg

DRUGS (11)
  1. AMLODIPINE BESILATE [Concomitant]
     Active Substance: AMLODIPINE BESYLATE
  2. MINOXIDIL. [Concomitant]
     Active Substance: MINOXIDIL
  3. ERGOCALCIFEROL. [Concomitant]
     Active Substance: ERGOCALCIFEROL
  4. EPOGEN [Concomitant]
     Active Substance: ERYTHROPOIETIN
  5. CLONIDINE HYDROCHLORIDE. [Concomitant]
     Active Substance: CLONIDINE HYDROCHLORIDE
  6. FOSRENOL [Concomitant]
     Active Substance: LANTHANUM CARBONATE
  7. RENVELA [Concomitant]
     Active Substance: SEVELAMER CARBONATE
  8. SENSIPAR [Concomitant]
     Active Substance: CINACALCET HYDROCHLORIDE
  9. VELTASSA [Suspect]
     Active Substance: PATIROMER
     Indication: HYPERKALAEMIA
     Route: 048
     Dates: start: 20161012
  10. LANTUS SOLOSTAR [Concomitant]
     Active Substance: INSULIN GLARGINE
  11. LOSARTAN POTASSIUM. [Concomitant]
     Active Substance: LOSARTAN POTASSIUM

REACTIONS (2)
  - Wound [Unknown]
  - Zoonotic bacterial infection [Recovered/Resolved]

NARRATIVE: CASE EVENT DATE: 20170211
